FAERS Safety Report 9711143 (Version 1)
Quarter: 2013Q4

REPORT INFORMATION
  Report Type: Spontaneous
  Country: US (occurrence: US)
  Receive Date: 20131126
  Receipt Date: 20131126
  Transmission Date: 20140711
  Serious: No
  Sender: FDA-Public Use
  Company Number: US-BRISTOL-MYERS SQUIBB COMPANY-19159912

PATIENT
  Sex: Female

DRUGS (2)
  1. BYETTA [Suspect]
  2. HUMULIN [Concomitant]
     Indication: DIABETES MELLITUS
     Dosage: 1DF:500 UNIT NOS,HUMULIN RU 500

REACTIONS (4)
  - Abdominal pain upper [Unknown]
  - Fatigue [Unknown]
  - Poor quality sleep [Unknown]
  - Weight increased [Unknown]
